FAERS Safety Report 4998129-2 (Version None)
Quarter: 2006Q2

REPORT INFORMATION
  Report Type: 
  Country: None (occurrence: None)
  Receive Date: 20060508
  Receipt Date: 20060424
  Transmission Date: 20061013
  Serious: Yes (Other)
  Sender: FDA-Public Use
  Company Number: HQWYE828404AUG04

PATIENT
  Age: 64 Year
  Sex: Female
  Weight: 79 kg

DRUGS (5)
  1. PREMPRO [Suspect]
  2. CYCRIN [Suspect]
  3. ESTRATEST (ESTROGENS ESTERIFIED/METHYLTOSTESTERONE) [Suspect]
  4. PREMARIN [Suspect]
  5. PROVERA [Suspect]

REACTIONS (7)
  - BREAST CANCER IN SITU [None]
  - BREAST CANCER METASTATIC [None]
  - CELLULITIS [None]
  - ERYSIPELAS [None]
  - LYMPHOEDEMA [None]
  - OESTROGEN RECEPTOR ASSAY POSITIVE [None]
  - PROGESTERONE RECEPTOR ASSAY POSITIVE [None]
